FAERS Safety Report 20222850 (Version 1)
Quarter: 2021Q4

REPORT INFORMATION
  Report Type: Spontaneous
  Country: US (occurrence: None)
  Receive Date: 20211223
  Receipt Date: 20211223
  Transmission Date: 20220303
  Serious: Yes (Hospitalization)
  Sender: FDA-Public Use
  Company Number: None

PATIENT
  Sex: Male

DRUGS (9)
  1. FEIBA NF [Suspect]
     Active Substance: ANTI-INHIBITOR COAGULANT COMPLEX
     Indication: Factor VIII deficiency
     Dosage: OTHER QUANTITY : 6506 UNITS;?
     Route: 042
  2. FEIBA NF [Suspect]
     Active Substance: ANTI-INHIBITOR COAGULANT COMPLEX
     Dosage: OTHER QUANTITY : 6506 UNITS;?
     Route: 042
  3. FEIBA NF [Suspect]
     Active Substance: ANTI-INHIBITOR COAGULANT COMPLEX
     Indication: Factor VII deficiency
     Dosage: OTHER QUANTITY : 6506 UNITS;?
     Route: 042
     Dates: start: 20210813
  4. FEIBA NF [Suspect]
     Active Substance: ANTI-INHIBITOR COAGULANT COMPLEX
     Dosage: OTHER QUANTITY : 6506 UNITS;?
     Route: 042
  5. FISH OIL [Concomitant]
     Active Substance: FISH OIL
  6. HYDROCHLOROT [Concomitant]
  7. LISINOPRIL [Concomitant]
     Active Substance: LISINOPRIL
  8. MULTIVIAMIN  TAB MEN 50+ [Concomitant]
  9. RECOMBINATE [Concomitant]
     Active Substance: ANTIHEMOPHILIC FACTOR, HUMAN RECOMBINANT

REACTIONS (2)
  - Accident [None]
  - Muscle haemorrhage [None]
